FAERS Safety Report 20887204 (Version 1)
Quarter: 2022Q2

REPORT INFORMATION
  Report Type: Spontaneous
  Country: US (occurrence: US)
  Receive Date: 20220528
  Receipt Date: 20220528
  Transmission Date: 20220720
  Serious: No
  Sender: FDA-Public Use
  Company Number: US-BRISTOL-MYERS SQUIBB COMPANY-2022-048263

PATIENT
  Age: 76 Year
  Sex: Male
  Weight: 73.03 kg

DRUGS (8)
  1. REVLIMID [Suspect]
     Active Substance: LENALIDOMIDE
     Indication: Plasma cell myeloma
     Dosage: DOSE: 10 MILLIGRAM, FREQ: DAILY FOR 21 DAYS, REST 7 DAYS
     Route: 048
     Dates: start: 20211210, end: 20220518
  2. DEXAMETHASONE [Concomitant]
     Active Substance: DEXAMETHASONE
     Indication: Product used for unknown indication
     Dosage: DOSE: 4 MILLIGRAM, FREQ: DAILY
     Route: 048
  3. IRBESARTAN [Concomitant]
     Active Substance: IRBESARTAN
     Indication: Product used for unknown indication
     Dosage: DOSE: 300 MILLIGRAM, FREQ: DAILY
     Route: 048
  4. DULOXETINE [Concomitant]
     Active Substance: DULOXETINE
     Indication: Product used for unknown indication
     Dosage: DOSE: 20 MILLIGRAM, FREQ: DAILY
     Route: 048
  5. ACYCLOVIR [Concomitant]
     Active Substance: ACYCLOVIR
     Indication: Product used for unknown indication
     Dosage: DOSE: 400 MILLIGRAM, FREQ: TWICE DAILY
     Route: 048
  6. MONTELUKAST [Concomitant]
     Active Substance: MONTELUKAST SODIUM
     Indication: Product used for unknown indication
     Dosage: DOSE: 10 MILLIGRAM, FREQ: DAILY
     Route: 048
  7. CLOPIDOGREL [Concomitant]
     Active Substance: CLOPIDOGREL BISULFATE
     Indication: Product used for unknown indication
     Dosage: DOSE: 75 MILLIGRAM, FREQ: DAILY
     Route: 048
  8. GABAPENTIN [Concomitant]
     Active Substance: GABAPENTIN
     Indication: Product used for unknown indication
     Dosage: DOSE: 600 MILLIGRAM, FREQ: TWICE DAILY
     Route: 048

REACTIONS (1)
  - Product dose omission issue [Unknown]
